FAERS Safety Report 24446006 (Version 3)
Quarter: 2024Q4

REPORT INFORMATION
  Report Type: Spontaneous
  Country: CA (occurrence: CA)
  Receive Date: 20241016
  Receipt Date: 20241129
  Transmission Date: 20250114
  Serious: Yes (Death, Hospitalization)
  Sender: TEVA
  Company Number: CA-TEVA-VS-3251840

PATIENT
  Age: 52 Year
  Sex: Male

DRUGS (38)
  1. AMLODIPINE [Suspect]
     Active Substance: AMLODIPINE BESYLATE
     Indication: Product used for unknown indication
     Route: 065
  2. AMLODIPINE [Suspect]
     Active Substance: AMLODIPINE BESYLATE
     Indication: Product used for unknown indication
     Route: 065
  3. MOMETASONE FUROATE [Suspect]
     Active Substance: MOMETASONE FUROATE
     Indication: Product used for unknown indication
     Route: 065
  4. PREDNISOLONE [Suspect]
     Active Substance: PREDNISOLONE
     Indication: Product used for unknown indication
     Route: 065
  5. PREDNISOLONE [Suspect]
     Active Substance: PREDNISOLONE
     Indication: Product used for unknown indication
     Route: 065
  6. RITUXIMAB [Suspect]
     Active Substance: RITUXIMAB
     Indication: B-cell lymphoma
     Route: 042
  7. RITUXIMAB [Suspect]
     Active Substance: RITUXIMAB
     Indication: B-cell lymphoma
     Route: 065
  8. EPIRUBICIN HYDROCHLORIDE [Suspect]
     Active Substance: EPIRUBICIN HYDROCHLORIDE
     Indication: Product used for unknown indication
     Dosage: DOSE FORM: SOLUTION INTRAVENOUS
     Route: 042
  9. EPIRUBICIN HYDROCHLORIDE [Suspect]
     Active Substance: EPIRUBICIN HYDROCHLORIDE
     Indication: Product used for unknown indication
     Route: 065
  10. BETAXOLOL [Suspect]
     Active Substance: BETAXOLOL
     Indication: Product used for unknown indication
     Route: 065
  11. BETAXOLOL [Suspect]
     Active Substance: BETAXOLOL
     Indication: Product used for unknown indication
     Route: 065
  12. FLUDARABINE PHOSPHATE [Suspect]
     Active Substance: FLUDARABINE PHOSPHATE
     Indication: Chronic lymphocytic leukaemia
     Route: 042
  13. FLUDARABINE PHOSPHATE [Suspect]
     Active Substance: FLUDARABINE PHOSPHATE
     Indication: Chronic lymphocytic leukaemia
     Route: 065
  14. DOXORUBICIN [Suspect]
     Active Substance: DOXORUBICIN
     Indication: Product used for unknown indication
     Route: 065
  15. DOXORUBICIN [Suspect]
     Active Substance: DOXORUBICIN
     Indication: Product used for unknown indication
     Route: 065
  16. CHLORAMBUCIL [Suspect]
     Active Substance: CHLORAMBUCIL
     Indication: Chronic lymphocytic leukaemia
     Route: 065
  17. OBINUTUZUMAB [Suspect]
     Active Substance: OBINUTUZUMAB
     Indication: Chronic lymphocytic leukaemia
     Route: 042
  18. OBINUTUZUMAB [Suspect]
     Active Substance: OBINUTUZUMAB
     Indication: Chronic lymphocytic leukaemia
     Route: 065
  19. CYCLOPHOSPHAMIDE [Suspect]
     Active Substance: CYCLOPHOSPHAMIDE
     Indication: Chronic lymphocytic leukaemia
     Route: 042
  20. CYCLOPHOSPHAMIDE [Suspect]
     Active Substance: CYCLOPHOSPHAMIDE
     Indication: Product used for unknown indication
     Route: 065
  21. EPINEPHRINE BITARTRATE [Suspect]
     Active Substance: EPINEPHRINE BITARTRATE
     Indication: Drug hypersensitivity
     Route: 030
  22. BESIFLOXACIN [Suspect]
     Active Substance: BESIFLOXACIN
     Indication: Product used for unknown indication
     Route: 065
  23. OLOPATADINE [Suspect]
     Active Substance: OLOPATADINE
     Indication: Product used for unknown indication
     Route: 065
  24. OLOPATADINE [Suspect]
     Active Substance: OLOPATADINE
     Indication: Product used for unknown indication
     Route: 065
  25. MOXIFLOXACIN [Suspect]
     Active Substance: MOXIFLOXACIN
     Indication: Product used for unknown indication
     Route: 065
  26. CIALIS [Suspect]
     Active Substance: TADALAFIL
     Indication: Product used for unknown indication
     Route: 065
  27. PREDNISONE ACETATE [Suspect]
     Active Substance: PREDNISONE ACETATE
     Indication: Product used for unknown indication
     Route: 065
  28. PREDNISONE ACETATE [Suspect]
     Active Substance: PREDNISONE ACETATE
     Indication: Product used for unknown indication
     Route: 065
  29. BENDAMUSTINE HYDROCHLORIDE [Suspect]
     Active Substance: BENDAMUSTINE HYDROCHLORIDE
     Indication: B-cell lymphoma
     Route: 042
  30. VINCRISTINE SULFATE [Suspect]
     Active Substance: VINCRISTINE SULFATE
     Indication: Product used for unknown indication
     Route: 065
  31. VINCRISTINE SULFATE [Suspect]
     Active Substance: VINCRISTINE SULFATE
     Indication: Product used for unknown indication
     Route: 065
  32. DOXORUBICIN HYDROCHLORIDE [Suspect]
     Active Substance: DOXORUBICIN HYDROCHLORIDE
     Indication: Product used for unknown indication
     Route: 065
  33. PREDNISOLONE SODIUM PHOSPHATE [Suspect]
     Active Substance: PREDNISOLONE SODIUM PHOSPHATE
     Indication: Product used for unknown indication
     Dosage: DOSE FORM: DROPS OPHTHALMIC
     Route: 065
  34. PREDNISOLONE SODIUM PHOSPHATE [Suspect]
     Active Substance: PREDNISOLONE SODIUM PHOSPHATE
     Indication: Product used for unknown indication
     Dosage: DOSE FORM: DROPS OPHTHALMIC
     Route: 065
  35. EPINEPHRINE [Suspect]
     Active Substance: EPINEPHRINE
     Indication: Drug hypersensitivity
     Dosage: DOSE FORM: NOT SPECIFIED
     Route: 030
  36. BESIVANCE [Suspect]
     Active Substance: BESIFLOXACIN
     Indication: Product used for unknown indication
     Dosage: DOSE FORM: SUSPENSION OPHTHALMIC
     Route: 065
  37. OLOPATADINE HYDROCHLORIDE [Suspect]
     Active Substance: OLOPATADINE HYDROCHLORIDE
     Indication: Product used for unknown indication
     Route: 065
  38. BENDAMUSTINE HYDROCHLORIDE [Suspect]
     Active Substance: BENDAMUSTINE HYDROCHLORIDE
     Indication: B-cell lymphoma
     Route: 042

REACTIONS (2)
  - Cardiac disorder [Fatal]
  - Hypersensitivity [Fatal]
